FAERS Safety Report 6656063-6 (Version None)
Quarter: 2010Q1

REPORT INFORMATION
  Report Type: 
  Country: None (occurrence: None)
  Receive Date: 20100329
  Receipt Date: 20100325
  Transmission Date: 20100710
  Serious: Yes (Other)
  Sender: FDA-Public Use
  Company Number: A0850240A

PATIENT
  Age: 78 Year
  Sex: Male

DRUGS (9)
  1. ADVAIR DISKUS 100/50 [Suspect]
     Indication: ASTHMA
     Dosage: 1PUFF TWICE PER DAY
     Route: 055
     Dates: start: 20090101
  2. SIMVASTATIN [Concomitant]
  3. ALTACE [Concomitant]
  4. HYDROCHLOROTHIAZIDE [Concomitant]
  5. ASPIRIN [Concomitant]
  6. ALLEGRA [Concomitant]
  7. NASACORT AQ [Concomitant]
  8. SINGULAIR [Concomitant]
  9. MULTI-VITAMINS [Concomitant]

REACTIONS (3)
  - ASTHMA [None]
  - DRUG INEFFECTIVE [None]
  - PRODUCT QUALITY ISSUE [None]
